FAERS Safety Report 6565125-3 (Version None)
Quarter: 2010Q1

REPORT INFORMATION
  Report Type: 
  Country: None (occurrence: None)
  Receive Date: 20100201
  Receipt Date: 20100127
  Transmission Date: 20100710
  Serious: Yes (Death)
  Sender: FDA-Public Use
  Company Number: A0842111A

PATIENT
  Age: 82 Year
  Sex: Female

DRUGS (2)
  1. PROMACTA [Suspect]
     Route: 048
  2. CORTICOSTEROIDS [Concomitant]
     Dates: start: 20090610

REACTIONS (3)
  - DEATH [None]
  - DISEASE PROGRESSION [None]
  - HAEMATOLOGICAL MALIGNANCY [None]
